FAERS Safety Report 4680249-3 (Version None)
Quarter: 2005Q2

REPORT INFORMATION
  Report Type: 
  Country: None (occurrence: None)
  Receive Date: 20050525
  Receipt Date: 20050211
  Transmission Date: 20051028
  Serious: No
  Sender: FDA-Public Use
  Company Number: 212407

PATIENT
  Age: 52 Year
  Sex: Female
  Weight: 51.2 kg

DRUGS (5)
  1. RAPTIVA [Suspect]
     Indication: PSORIASIS
     Dosage: 0.4 ML, SUBCUTANEOUS;   5 ML, 1/WEEK, SUBCUTANEOUS
     Route: 058
     Dates: start: 20041217
  2. COZAAR [Concomitant]
  3. CYCLOSPORINE [Concomitant]
  4. FOLTX (PYRIDOXINE HYDROCHLORIDE, FOLIC ACID, CYANOCOBALAMIN) [Concomitant]
  5. HYDROXYZINE [Concomitant]

REACTIONS (1)
  - PSORIASIS [None]
